FAERS Safety Report 13968908 (Version 1)
Quarter: 2017Q3

REPORT INFORMATION
  Report Type: Spontaneous
  Country: US (occurrence: US)
  Receive Date: 20170914
  Receipt Date: 20170914
  Transmission Date: 20171128
  Serious: No
  Sender: FDA-Public Use
  Company Number: US-ASTELLAS-2016US038124

PATIENT
  Age: 84 Year
  Sex: Male

DRUGS (1)
  1. XTANDI [Suspect]
     Active Substance: ENZALUTAMIDE
     Indication: PROSTATE CANCER
     Route: 048
     Dates: start: 20160708

REACTIONS (9)
  - Constipation [Not Recovered/Not Resolved]
  - Abdominal pain upper [Recovered/Resolved]
  - Pain [Recovered/Resolved]
  - Treatment noncompliance [Unknown]
  - Back pain [Not Recovered/Not Resolved]
  - Musculoskeletal pain [Recovered/Resolved]
  - Diarrhoea [Recovered/Resolved]
  - Somnolence [Not Recovered/Not Resolved]
  - Fatigue [Not Recovered/Not Resolved]

NARRATIVE: CASE EVENT DATE: 201607
